FAERS Safety Report 9944132 (Version 1)
Quarter: 2014Q1

REPORT INFORMATION
  Report Type: Report from Study
  Country: US (occurrence: US)
  Receive Date: 20140303
  Receipt Date: 20140303
  Transmission Date: 20141002
  Serious: No
  Sender: FDA-Public Use
  Company Number: US-ABBVIE-13P-163-1051990-00

PATIENT
  Sex: Female

DRUGS (3)
  1. HUMIRA [Suspect]
     Indication: PSORIATIC ARTHROPATHY
  2. HUMIRA [Suspect]
  3. METFORMIN [Concomitant]
     Indication: DIABETES MELLITUS

REACTIONS (2)
  - Nasopharyngitis [Recovered/Resolved]
  - Psoriasis [Recovered/Resolved]
